FAERS Safety Report 24859117 (Version 1)
Quarter: 2025Q1

REPORT INFORMATION
  Report Type: Spontaneous
  Country: CN (occurrence: CN)
  Receive Date: 20250118
  Receipt Date: 20250118
  Transmission Date: 20250408
  Serious: Yes (Other)
  Sender: ACCORD
  Company Number: CN-MLMSERVICE-20250107-PI328506-00077-2

PATIENT
  Age: 59 Year
  Sex: Female

DRUGS (30)
  1. CAPECITABINE [Suspect]
     Active Substance: CAPECITABINE
     Indication: Colon cancer metastatic
     Dosage: ON D1-7, D15-21 FOR SIX CYCLES
     Dates: start: 20201130, end: 20210715
  2. IRINOTECAN [Suspect]
     Active Substance: IRINOTECAN
     Indication: Colon cancer metastatic
     Dosage: ON D15 FOR SIX CYCLES
     Dates: start: 20201130, end: 20210715
  3. OXALIPLATIN [Suspect]
     Active Substance: OXALIPLATIN
     Indication: Colon cancer metastatic
     Dosage: ON D1 FOR SIX CYCLES
     Dates: start: 20201130, end: 20210715
  4. BEVACIZUMAB [Suspect]
     Active Substance: BEVACIZUMAB
     Indication: Colon cancer metastatic
     Dosage: ON D1, D15 FOR SIX CYCLES
     Dates: start: 20201130, end: 20210715
  5. MANNITOL [Concomitant]
     Active Substance: MANNITOL
     Indication: Colon cancer metastatic
     Dates: start: 20201130, end: 20210715
  6. IRINOTECAN [Suspect]
     Active Substance: IRINOTECAN
     Indication: Metastases to diaphragm
     Dosage: ON D15 FOR SIX CYCLES
     Dates: start: 20201130, end: 20210715
  7. CAPECITABINE [Suspect]
     Active Substance: CAPECITABINE
     Indication: Colon cancer stage IV
     Dosage: ON D1-7, D15-21 FOR SIX CYCLES
     Dates: start: 20201130, end: 20210715
  8. MANNITOL [Concomitant]
     Active Substance: MANNITOL
     Indication: Colon cancer stage IV
     Dates: start: 20201130, end: 20210715
  9. IRINOTECAN [Suspect]
     Active Substance: IRINOTECAN
     Indication: Colon cancer stage IV
     Dosage: ON D15 FOR SIX CYCLES
     Dates: start: 20201130, end: 20210715
  10. IRINOTECAN [Suspect]
     Active Substance: IRINOTECAN
     Indication: Metastases to abdominal cavity
     Dosage: ON D15 FOR SIX CYCLES
     Dates: start: 20201130, end: 20210715
  11. IRINOTECAN [Suspect]
     Active Substance: IRINOTECAN
     Indication: Metastases to lymph nodes
     Dosage: ON D15 FOR SIX CYCLES
     Dates: start: 20201130, end: 20210715
  12. IRINOTECAN [Suspect]
     Active Substance: IRINOTECAN
     Indication: Metastases to retroperitoneum
     Dosage: ON D15 FOR SIX CYCLES
     Dates: start: 20201130, end: 20210715
  13. CAPECITABINE [Suspect]
     Active Substance: CAPECITABINE
     Indication: Metastases to abdominal cavity
     Dosage: ON D1-7, D15-21 FOR SIX CYCLES
     Dates: start: 20201130, end: 20210715
  14. MANNITOL [Concomitant]
     Active Substance: MANNITOL
     Indication: Metastases to abdominal cavity
     Dates: start: 20201130, end: 20210715
  15. BEVACIZUMAB [Suspect]
     Active Substance: BEVACIZUMAB
     Indication: Metastases to abdominal cavity
     Dosage: ON D1, D15 FOR SIX CYCLES
     Dates: start: 20201130, end: 20210715
  16. OXALIPLATIN [Suspect]
     Active Substance: OXALIPLATIN
     Indication: Metastases to abdominal cavity
     Dosage: ON D1 FOR SIX CYCLES
     Dates: start: 20201130, end: 20210715
  17. MANNITOL [Concomitant]
     Active Substance: MANNITOL
     Indication: Metastases to lymph nodes
     Dates: start: 20201130, end: 20210715
  18. BEVACIZUMAB [Suspect]
     Active Substance: BEVACIZUMAB
     Indication: Metastases to lymph nodes
     Dosage: ON D1, D15 FOR SIX CYCLES
     Dates: start: 20201130, end: 20210715
  19. OXALIPLATIN [Suspect]
     Active Substance: OXALIPLATIN
     Indication: Metastases to lymph nodes
     Dosage: ON D1 FOR SIX CYCLES
     Dates: start: 20201130, end: 20210715
  20. CAPECITABINE [Suspect]
     Active Substance: CAPECITABINE
     Indication: Metastases to lymph nodes
     Dosage: ON D1-7, D15-21 FOR SIX CYCLES
     Dates: start: 20201130, end: 20210715
  21. CAPECITABINE [Suspect]
     Active Substance: CAPECITABINE
     Indication: Metastases to retroperitoneum
     Dosage: ON D1-7, D15-21 FOR SIX CYCLES
     Dates: start: 20201130, end: 20210715
  22. MANNITOL [Concomitant]
     Active Substance: MANNITOL
     Indication: Metastases to retroperitoneum
     Dates: start: 20201130, end: 20210715
  23. BEVACIZUMAB [Suspect]
     Active Substance: BEVACIZUMAB
     Indication: Metastases to retroperitoneum
     Dosage: ON D1, D15 FOR SIX CYCLES
     Dates: start: 20201130, end: 20210715
  24. OXALIPLATIN [Suspect]
     Active Substance: OXALIPLATIN
     Indication: Metastases to retroperitoneum
     Dosage: ON D1 FOR SIX CYCLES
     Dates: start: 20201130, end: 20210715
  25. BEVACIZUMAB [Suspect]
     Active Substance: BEVACIZUMAB
     Indication: Metastases to diaphragm
     Dosage: ON D1, D15 FOR SIX CYCLES
     Dates: start: 20201130, end: 20210715
  26. OXALIPLATIN [Suspect]
     Active Substance: OXALIPLATIN
     Indication: Metastases to diaphragm
     Dosage: ON D1 FOR SIX CYCLES
     Dates: start: 20201130, end: 20210715
  27. CAPECITABINE [Suspect]
     Active Substance: CAPECITABINE
     Indication: Metastases to diaphragm
     Dosage: ON D1-7, D15-21 FOR SIX CYCLES
     Dates: start: 20201130, end: 20210715
  28. MANNITOL [Concomitant]
     Active Substance: MANNITOL
     Indication: Metastases to diaphragm
     Dates: start: 20201130, end: 20210715
  29. BEVACIZUMAB [Suspect]
     Active Substance: BEVACIZUMAB
     Indication: Colon cancer stage IV
     Dosage: ON D1, D15 FOR SIX CYCLES
     Dates: start: 20201130, end: 20210715
  30. OXALIPLATIN [Suspect]
     Active Substance: OXALIPLATIN
     Indication: Colon cancer stage IV
     Dosage: ON D1 FOR SIX CYCLES
     Dates: start: 20201130, end: 20210715

REACTIONS (2)
  - Agranulocytosis [Recovering/Resolving]
  - Pyrexia [Recovering/Resolving]

NARRATIVE: CASE EVENT DATE: 20210101
